FAERS Safety Report 9430860 (Version 1)
Quarter: 2013Q3

REPORT INFORMATION
  Report Type: Spontaneous
  Country: BR (occurrence: None)
  Receive Date: 20130726
  Receipt Date: 20130726
  Transmission Date: 20140515
  Serious: Yes (Death)
  Sender: FDA-Public Use
  Company Number: DSU-2013-04028

PATIENT
  Age: 93 Year
  Sex: Female
  Weight: 85 kg

DRUGS (7)
  1. OLMETEC [Suspect]
     Indication: HYPERTENSION
     Dosage: 20 MG (20 MG, QD), PER ORAL
     Route: 048
     Dates: start: 20100409
  2. LYRICA [Suspect]
     Indication: PAIN IN EXTREMITY
     Dosage: (75 MG, QD), PER ORAL
     Route: 048
     Dates: start: 20120301
  3. BENELAV (INGREDIENTS UNKNOWN) [Concomitant]
  4. DEXOTA (INGREDIENTS UNKNOWN) [Concomitant]
  5. ARTOLIVE (CHONDROITIN SULFATE, GLUCOSAMINE SULFATE) (CHONDROITIN SULFATE, GLUCOSAMIDE SULFATE) [Concomitant]
  6. CALTREN (NITRENDIPINE) (NITRENDIPINE) [Concomitant]
  7. LABRIOTIOX (INGREDIENTS UNKNOWN) [Concomitant]

REACTIONS (1)
  - Pain in extremity [None]
